FAERS Safety Report 10029546 (Version 1)
Quarter: 2014Q1

REPORT INFORMATION
  Report Type: Spontaneous
  Country: US (occurrence: None)
  Receive Date: 20140320
  Receipt Date: 20140320
  Transmission Date: 20141002
  Serious: Yes (Other)
  Sender: FDA-Public Use
  Company Number: None

PATIENT
  Age: 35 Year
  Sex: Male
  Weight: 78.02 kg

DRUGS (1)
  1. INSULIN [Suspect]
     Indication: TYPE 1 DIABETES MELLITUS
     Dosage: CONTINUOUS GIVEN INTO/UNEER THE SKIN
     Dates: start: 20131101, end: 20140319

REACTIONS (3)
  - Device malfunction [None]
  - Presyncope [None]
  - Blood glucose increased [None]
